FAERS Safety Report 7551230-1 (Version None)
Quarter: 2011Q2

REPORT INFORMATION
  Report Type: 
  Country: None (occurrence: None)
  Receive Date: 20110616
  Receipt Date: 20110608
  Transmission Date: 20111010
  Serious: Yes (Hospitalization)
  Sender: FDA-Public Use
  Company Number: PHHO2011CA09955

PATIENT
  Sex: Male
  Weight: 68 kg

DRUGS (11)
  1. RADIOTHERAPY [Suspect]
  2. COUMADIN [Concomitant]
     Indication: ANTICOAGULANT THERAPY
  3. AFINITOR [Suspect]
     Indication: BLADDER CANCER
     Dosage: 5 MG, DAILY
     Route: 048
     Dates: start: 20110221, end: 20110411
  4. CHEMOTHERAPEUTICS [Suspect]
  5. LORAZEPAM [Concomitant]
     Indication: ANXIETY
  6. CRESTOR [Concomitant]
     Indication: HYPERCHOLESTEROLAEMIA
  7. LISINOPRIL [Concomitant]
     Indication: CARDIAC FAILURE CONGESTIVE
  8. FENOFIBRATE [Concomitant]
     Indication: HYPERCHOLESTEROLAEMIA
  9. ASPIRIN [Concomitant]
     Indication: MYOCARDIAL INFARCTION
  10. CARVEDILOL [Concomitant]
     Indication: CARDIAC FAILURE CONGESTIVE
  11. PROCHLORPERAZINE TAB [Concomitant]
     Indication: NAUSEA

REACTIONS (5)
  - FEBRILE NEUTROPENIA [None]
  - HYPOTENSION [None]
  - GASTROENTERITIS RADIATION [None]
  - GASTROINTESTINAL HAEMORRHAGE [None]
  - PANCYTOPENIA [None]
